FAERS Safety Report 16558287 (Version 2)
Quarter: 2019Q3

REPORT INFORMATION
  Report Type: Report from Study
  Country: AU (occurrence: AU)
  Receive Date: 20190711
  Receipt Date: 20190925
  Transmission Date: 20191004
  Serious: Yes (Hospitalization)
  Sender: FDA-Public Use
  Company Number: AU-ROCHE-2350158

PATIENT
  Age: 68 Year
  Sex: Female
  Weight: 65.9 kg

DRUGS (4)
  1. NIVESTIM [Concomitant]
     Active Substance: FILGRASTIM
     Indication: NEUTROPENIA
     Route: 058
     Dates: start: 20190605
  2. ZANUBRUTINIB [Suspect]
     Active Substance: ZANUBRUTINIB
     Indication: B-CELL LYMPHOMA
     Dosage: LAST DOSE PRIOR TO SAE ON 01/JUL/2019?ON HOLD FOR PICC INSERTION
     Route: 048
     Dates: start: 20190627
  3. OBINUTUZUMAB. [Suspect]
     Active Substance: OBINUTUZUMAB
     Indication: B-CELL LYMPHOMA
     Dosage: THERAPY INTERRUPTED ON 04/JUL/2019
     Route: 042
     Dates: start: 20190627
  4. TAZOCIN [Concomitant]
     Active Substance: PIPERACILLIN SODIUM\TAZOBACTAM SODIUM
     Route: 042
     Dates: start: 20190704, end: 20190709

REACTIONS (1)
  - Infusion related reaction [Recovered/Resolved]

NARRATIVE: CASE EVENT DATE: 20190704
